FAERS Safety Report 15690663 (Version 1)
Quarter: 2018Q4

REPORT INFORMATION
  Report Type: Spontaneous
  Country: SI (occurrence: SI)
  Receive Date: 20181205
  Receipt Date: 20181205
  Transmission Date: 20190205
  Serious: Yes (Hospitalization, Other)
  Sender: FDA-Public Use
  Company Number: SI-TEVA-2018-SI-981817

PATIENT
  Age: 57 Year
  Sex: Female

DRUGS (7)
  1. LACIPIL 2 MG [Concomitant]
  2. DOKSORUBICIN TEVA 2 MG/ML [Suspect]
     Active Substance: DOXORUBICIN HYDROCHLORIDE
     Indication: BREAST CANCER
     Dosage: 2MG/ML CONCENTRATE FOR SOLUTION FOR INFUSION
     Route: 042
     Dates: start: 20180912, end: 20181030
  3. INSULIN - INJECTION [Concomitant]
     Active Substance: INSULIN HUMAN
  4. XIGDUO 5 MG/1,000 MG [Concomitant]
     Dosage: 5/1000 MG, 2X1
  5. TERTENSIF SR 1,5 MG [Concomitant]
  6. MICARDIS [Concomitant]
     Active Substance: TELMISARTAN
  7. ENDOXAN 1000 MG [Suspect]
     Active Substance: CYCLOPHOSPHAMIDE
     Indication: BREAST CANCER
     Dosage: 1000 MG POWDER FOR SOLUTION FOR INFUSION
     Route: 042
     Dates: start: 20180912, end: 20181030

REACTIONS (4)
  - Oesophageal candidiasis [Recovered/Resolved]
  - Gastritis [Recovered/Resolved]
  - Hiatus hernia [Recovered/Resolved]
  - Aphthous ulcer [Recovered/Resolved]

NARRATIVE: CASE EVENT DATE: 20180925
